FAERS Safety Report 17328835 (Version 1)
Quarter: 2020Q1

REPORT INFORMATION
  Report Type: Report from Study
  Country: US (occurrence: US)
  Receive Date: 20200127
  Receipt Date: 20200127
  Transmission Date: 20200409
  Serious: Yes (Hospitalization)
  Sender: FDA-Public Use
  Company Number: US-BAYER-2020-010354

PATIENT
  Sex: Female

DRUGS (1)
  1. ADEMPAS [Suspect]
     Active Substance: RIOCIGUAT
     Indication: RAYNAUD^S PHENOMENON
     Dosage: 2.5 MG, TID
     Route: 048
     Dates: start: 20180319

REACTIONS (3)
  - Product use in unapproved indication [None]
  - Hospitalisation [None]
  - Off label use [None]
